FAERS Safety Report 7759864-6 (Version None)
Quarter: 2011Q3

REPORT INFORMATION
  Report Type: 
  Country: None (occurrence: None)
  Receive Date: 20110919
  Receipt Date: 20110908
  Transmission Date: 20111222
  Serious: Yes (Other)
  Sender: FDA-Public Use
  Company Number: US-JNJFOC-20101208580

PATIENT
  Sex: Male
  Weight: 12.7 kg

DRUGS (9)
  1. PREDNISONE [Concomitant]
  2. ANTIBIOTICS [Concomitant]
     Indication: CROHN'S DISEASE
  3. FERROUS SULFATE TAB [Concomitant]
  4. MESALAMINE [Concomitant]
  5. REMICADE [Suspect]
     Indication: CROHN'S DISEASE
     Route: 042
     Dates: start: 20091111
  6. DEXTRAN INJ [Concomitant]
  7. PROBIOTICS [Concomitant]
  8. PREVACID [Concomitant]
  9. MULTI-VITAMINS [Concomitant]

REACTIONS (1)
  - HAEMORRHAGIC ANAEMIA [None]
